FAERS Safety Report 5011502-1 (Version None)
Quarter: 2006Q2

REPORT INFORMATION
  Report Type: 
  Country: None (occurrence: None)
  Receive Date: 20060525
  Receipt Date: 20060502
  Transmission Date: 20061013
  Serious: Yes (Hospitalization, Other)
  Sender: FDA-Public Use
  Company Number: DE-MERCK-0605DEU00007

PATIENT
  Age: 46 Year
  Sex: Male
  Weight: 116 kg

DRUGS (1)
  1. ZETIA [Suspect]
     Indication: HYPERCHOLESTEROLAEMIA
     Route: 048
     Dates: start: 20051201, end: 20060301

REACTIONS (12)
  - ALANINE AMINOTRANSFERASE INCREASED [None]
  - ASPARTATE AMINOTRANSFERASE INCREASED [None]
  - BLOOD LACTATE DEHYDROGENASE INCREASED [None]
  - DIABETES MELLITUS INADEQUATE CONTROL [None]
  - DUODENITIS [None]
  - GAMMA-GLUTAMYLTRANSFERASE INCREASED [None]
  - GASTRITIS [None]
  - HEPATIC STEATOSIS [None]
  - HYPERTENSION [None]
  - METABOLIC SYNDROME [None]
  - RHABDOMYOLYSIS [None]
  - TACHYARRHYTHMIA [None]
